FAERS Safety Report 4937291-4 (Version None)
Quarter: 2006Q1

REPORT INFORMATION
  Report Type: 
  Country: None (occurrence: None)
  Receive Date: 20060302
  Receipt Date: 20060222
  Transmission Date: 20060701
  Serious: Yes (Disabling, Other)
  Sender: FDA-Public Use
  Company Number: 2005155584

PATIENT
  Age: 74 Year
  Sex: Male
  Weight: 73 kg

DRUGS (8)
  1. XANAX [Suspect]
     Indication: ANXIETY
     Dosage: 6 MG (0.25 MG, 3 IN 1 D), ORAL
     Route: 048
     Dates: start: 19950101, end: 20050801
  2. XANAX [Suspect]
     Indication: HYPOTONIA
     Dosage: 6 MG (0.25 MG, 3 IN 1 D), ORAL
     Route: 048
     Dates: start: 19950101, end: 20050801
  3. MYOLASTAN (TETRAZEPAM) [Suspect]
     Indication: BACK PAIN
     Dosage: 25 MG (1 IN 1 D), ORAL
     Route: 048
     Dates: start: 20050601, end: 20050601
  4. MYOLASTAN (TETRAZEPAM) [Suspect]
     Indication: HYPOTONIA
     Dosage: 25 MG (1 IN 1 D), ORAL
     Route: 048
     Dates: start: 20050601, end: 20050601
  5. VALPROATE SODIUM [Suspect]
     Indication: HYPOTONIA
     Dosage: 600 MG, (300 MG, 2 IN 1 D), ORAL
     Route: 048
     Dates: start: 20050601, end: 20050601
  6. LUMIRELAX (METHOCARBAMOL, METHYL NICOTINATE) [Suspect]
     Indication: HYPOTONIA
     Dosage: (4 IN 1 D), ORAL
     Route: 048
     Dates: start: 20050601, end: 20050601
  7. DEXCHLORPHENIRAMINE MALEATE [Concomitant]
  8. ZOLPIDEM TARTRATE [Concomitant]

REACTIONS (22)
  - ARRHYTHMIA [None]
  - ATROPHY [None]
  - BLOOD COUNT ABNORMAL [None]
  - DIFFICULTY IN WALKING [None]
  - DRUG EFFECT DECREASED [None]
  - DRUG HYPERSENSITIVITY [None]
  - FLUID IMBALANCE [None]
  - GRANULOCYTE COUNT DECREASED [None]
  - INCREASED APPETITE [None]
  - INFLAMMATION [None]
  - INSOMNIA [None]
  - MUSCLE CONTRACTURE [None]
  - MUSCLE RIGIDITY [None]
  - MUSCLE SPASMS [None]
  - MYOSITIS [None]
  - NEURITIS [None]
  - OEDEMA [None]
  - PAIN [None]
  - PARALYSIS [None]
  - REBOUND EFFECT [None]
  - RED BLOOD CELL SEDIMENTATION RATE DECREASED [None]
  - RHABDOMYOLYSIS [None]
